FAERS Safety Report 12963066 (Version 1)
Quarter: 2016Q4

REPORT INFORMATION
  Report Type: Spontaneous
  Country: AU (occurrence: AU)
  Receive Date: 20161122
  Receipt Date: 20161122
  Transmission Date: 20170207
  Serious: Yes (Hospitalization)
  Sender: FDA-Public Use
  Company Number: AU-B.I. PHARMACEUTICALS,INC./RIDGEFIELD-2016-BI-076845

PATIENT
  Sex: Male

DRUGS (1)
  1. JARDIANCE [Suspect]
     Active Substance: EMPAGLIFLOZIN
     Indication: WEIGHT DECREASED
     Route: 065

REACTIONS (5)
  - Dehydration [Recovered/Resolved]
  - Off label use [Unknown]
  - Ketoacidosis [Recovered/Resolved]
  - Gastric disorder [Recovered/Resolved]
  - Weight decreased [Unknown]
